FAERS Safety Report 24296181 (Version 1)
Quarter: 2024Q3

REPORT INFORMATION
  Report Type: Spontaneous
  Country: IN (occurrence: IN)
  Receive Date: 20240909
  Receipt Date: 20240909
  Transmission Date: 20241017
  Serious: Yes (Other)
  Sender: SOLARIS PHARMA
  Company Number: IN-SPC-000481

PATIENT
  Age: 48 Year
  Sex: Male

DRUGS (3)
  1. METRONIDAZOLE [Suspect]
     Active Substance: METRONIDAZOLE
     Indication: Pseudomembranous colitis
     Route: 048
  2. VANCOMYCIN [Suspect]
     Active Substance: VANCOMYCIN
     Indication: Pseudomembranous colitis
     Route: 048
  3. METRONIDAZOLE [Suspect]
     Active Substance: METRONIDAZOLE
     Indication: Pseudomembranous colitis
     Route: 048

REACTIONS (3)
  - Disease recurrence [Recovered/Resolved]
  - Pseudomembranous colitis [Recovered/Resolved]
  - Product use in unapproved indication [Unknown]
